FAERS Safety Report 7940188-9 (Version None)
Quarter: 2011Q4

REPORT INFORMATION
  Report Type: 
  Country: None (occurrence: None)
  Receive Date: 20111125
  Receipt Date: 20111018
  Transmission Date: 20120403
  Serious: Yes (Other)
  Sender: FDA-Public Use
  Company Number: PHHY2011GB91935

PATIENT
  Age: 52 Year
  Sex: Female

DRUGS (13)
  1. LAMOTRIGINE [Suspect]
  2. GLICLAZIDE [Concomitant]
  3. ENALAPRIL MALEATE [Concomitant]
  4. AMLODIPINE [Concomitant]
  5. DIPYRIDAMOLE [Concomitant]
  6. CARBAMAZEPINE [Suspect]
     Indication: EPILEPSY
     Dosage: 600 MG, UNK
  7. CARBAMAZEPINE [Suspect]
     Dosage: 300 MG, UNK
  8. BENDROFLUMETHIAZIDE [Concomitant]
  9. ATENOLOL [Concomitant]
  10. CITALOPRAM HYDROBROMIDE [Concomitant]
  11. ATORVASTATIN [Concomitant]
  12. METFORMIN [Concomitant]
  13. ASPIRIN [Concomitant]

REACTIONS (5)
  - FEELING ABNORMAL [None]
  - LETHARGY [None]
  - HYPERAMMONAEMIA [None]
  - MUSCULAR WEAKNESS [None]
  - CONFUSIONAL STATE [None]
